FAERS Safety Report 8816486 (Version 1)
Quarter: 2012Q4

REPORT INFORMATION
  Report Type: Spontaneous
  Country: US (occurrence: None)
  Receive Date: 20120927
  Receipt Date: 20120927
  Transmission Date: 20130627
  Serious: Yes (Death)
  Sender: FDA-Public Use
  Company Number: 201209000113

PATIENT
  Age: 22 Month
  Sex: Male

DRUGS (5)
  1. INOMAX [Suspect]
     Indication: PULMONARY ARTERIAL HYPERTENSION
  2. ALEMTUZUMAB [Concomitant]
  3. FLUDARABINE (FLUDARABINE) [Concomitant]
  4. MELPHALAN (MELPHALAN) [Concomitant]
  5. CYCLOSPORINE [Concomitant]

REACTIONS (1)
  - Drug ineffective [None]
